FAERS Safety Report 10530108 (Version 3)
Quarter: 2015Q3

REPORT INFORMATION
  Report Type: Spontaneous
  Country: US (occurrence: US)
  Receive Date: 20141021
  Receipt Date: 20150902
  Transmission Date: 20151125
  Serious: Yes (Hospitalization, Other)
  Sender: FDA-Public Use
  Company Number: US-PFIZER INC-2014285649

PATIENT
  Age: 68 Year
  Sex: Male
  Weight: 73 kg

DRUGS (13)
  1. SANDOSTATIN [Concomitant]
     Active Substance: OCTREOTIDE ACETATE
     Indication: NEOPLASM PROGRESSION
     Dosage: 3 MG, MONTHLY
     Route: 030
     Dates: start: 200205, end: 200310
  2. SANDOSTATIN [Concomitant]
     Active Substance: OCTREOTIDE ACETATE
     Indication: MALIGNANT NEOPLASM OF ISLETS OF LANGERHANS
     Dosage: UNK
     Dates: start: 200606
  3. SUTENT [Suspect]
     Active Substance: SUNITINIB MALATE
     Dosage: 37.5 MG, 1X/DAY
     Route: 048
     Dates: start: 201401, end: 20140904
  4. SANDOSTATIN [Concomitant]
     Active Substance: OCTREOTIDE ACETATE
     Dosage: 4 MG, UNK
  5. COUMADIN [Concomitant]
     Active Substance: WARFARIN SODIUM
     Dosage: 4 MG, EVERY SUNDAY, TUESDAY, THURSDAY, AND SATURDAY
  6. SUTENT [Suspect]
     Active Substance: SUNITINIB MALATE
     Dosage: 37.5 MG, 1X/DAY
     Route: 048
     Dates: start: 20140927, end: 20150803
  7. RAPAMUNE [Concomitant]
     Active Substance: SIROLIMUS
     Indication: LIVER TRANSPLANT REJECTION
     Dosage: 4 MG, DAILY (1MG FOUR TABLETS BY MOUTH DAILY)
     Route: 048
  8. TRADJENTA [Concomitant]
     Active Substance: LINAGLIPTIN
     Indication: DIABETES MELLITUS
     Dosage: 5 MG, DAILY
     Route: 048
  9. SUTENT [Suspect]
     Active Substance: SUNITINIB MALATE
     Indication: GASTRINOMA
     Dosage: 37.5 MG, 1X/DAY
     Route: 048
     Dates: start: 201302, end: 201401
  10. METFORMIN [Concomitant]
     Active Substance: METFORMIN HYDROCHLORIDE
     Indication: DIABETES MELLITUS
     Dosage: 500 MG, 2X/DAY
  11. PANTOPRAZOLE [Concomitant]
     Active Substance: PANTOPRAZOLE SODIUM
     Dosage: 80 MG, 2X/DAY, (40MG TWO TABLETS BY MOUTH TWICE A DAY)
  12. METFORMIN [Concomitant]
     Active Substance: METFORMIN HYDROCHLORIDE
     Dosage: 1000 MG, 2X/DAY (500MG TWO TABLETS BY MOUTH TWICE A DAY)
     Route: 048
  13. COUMADIN [Concomitant]
     Active Substance: WARFARIN SODIUM
     Indication: THROMBOSIS
     Dosage: 3 MG, EVERY MONDAY, WEDNESDAY, AND FRIDAY

REACTIONS (7)
  - Haematochezia [Recovered/Resolved]
  - Gastrinoma [Not Recovered/Not Resolved]
  - Disease progression [Not Recovered/Not Resolved]
  - Blood pressure increased [Not Recovered/Not Resolved]
  - Gastric disorder [Unknown]
  - Gastric haemorrhage [Recovered/Resolved]
  - Haemoglobin decreased [Recovered/Resolved]

NARRATIVE: CASE EVENT DATE: 201302
